FAERS Safety Report 13457019 (Version 1)
Quarter: 2017Q2

REPORT INFORMATION
  Report Type: Report from Study
  Country: TH (occurrence: TH)
  Receive Date: 20170419
  Receipt Date: 20170419
  Transmission Date: 20170830
  Serious: Yes (Hospitalization)
  Sender: FDA-Public Use
  Company Number: TH-EISAI MEDICAL RESEARCH-E7389-01009-CLI-TH

PATIENT
  Age: 66 Year
  Sex: Male
  Weight: 50 kg

DRUGS (9)
  1. ERIBULIN [Suspect]
     Active Substance: ERIBULIN
     Indication: NON-SMALL CELL LUNG CANCER
     Route: 041
     Dates: start: 20100921
  2. ERLOTINIB [Concomitant]
     Active Substance: ERLOTINIB
     Indication: NON-SMALL CELL LUNG CANCER
     Route: 048
     Dates: start: 20100922, end: 20100930
  3. FOLIC ACID. [Concomitant]
     Active Substance: FOLIC ACID
     Dates: start: 20091126
  4. FERROUS FUMARATE [Concomitant]
     Active Substance: FERROUS FUMARATE
     Dates: start: 20100525
  5. LOPERAMIDE [Concomitant]
     Active Substance: LOPERAMIDE
     Dates: start: 20100921
  6. NIFEDIPINE SR [Concomitant]
     Active Substance: NIFEDIPINE
     Dates: start: 20100303
  7. CODEPECT [Concomitant]
     Dates: start: 20100126
  8. TRAMADOL. [Concomitant]
     Active Substance: TRAMADOL
     Dates: start: 20091126
  9. ERLOTINIB [Concomitant]
     Active Substance: ERLOTINIB
     Route: 048
     Dates: start: 20101013

REACTIONS (2)
  - Febrile neutropenia [Recovered/Resolved]
  - Stomatitis [Recovered/Resolved]

NARRATIVE: CASE EVENT DATE: 20101001
